FAERS Safety Report 6491337-3 (Version None)
Quarter: 2009Q4

REPORT INFORMATION
  Report Type: 
  Country: None (occurrence: None)
  Receive Date: 20091207
  Receipt Date: 20091126
  Transmission Date: 20100525
  Serious: Yes (Disabling)
  Sender: FDA-Public Use
  Company Number: 2009DE0029

PATIENT
  Age: 13 Year
  Sex: Male

DRUGS (1)
  1. ORFADIN [Suspect]
     Indication: TYROSINAEMIA
     Dosage: 0,5 MG/KG (30 MG, 1 IN 1 D), ORAL
     Route: 048
     Dates: start: 19951031

REACTIONS (3)
  - AMINO ACID LEVEL INCREASED [None]
  - COGNITIVE DISORDER [None]
  - MEMORY IMPAIRMENT [None]
